FAERS Safety Report 8416906-2 (Version None)
Quarter: 2012Q2

REPORT INFORMATION
  Report Type: 
  Country: None (occurrence: None)
  Receive Date: 20120606
  Receipt Date: 20120531
  Transmission Date: 20120825
  Serious: No
  Sender: FDA-Public Use
  Company Number: US-BAYER-2012-055522

PATIENT

DRUGS (1)
  1. ALEVE (CAPLET) [Suspect]
     Dosage: 4 TAB
     Route: 048

REACTIONS (4)
  - FEELING JITTERY [None]
  - DIZZINESS [None]
  - ASTHENIA [None]
  - MUSCLE SPASMS [None]
